FAERS Safety Report 14526866 (Version 1)
Quarter: 2018Q1

REPORT INFORMATION
  Report Type: Spontaneous
  Country: US (occurrence: US)
  Receive Date: 20180213
  Receipt Date: 20180213
  Transmission Date: 20180509
  Serious: Yes (Hospitalization, Other)
  Sender: FDA-Public Use
  Company Number: US-PFIZER INC-2018061776

PATIENT
  Sex: Female

DRUGS (8)
  1. SEROQUEL [Concomitant]
     Active Substance: QUETIAPINE FUMARATE
     Dosage: UNK
  2. REXULTI [Suspect]
     Active Substance: BREXPIPRAZOLE
     Indication: HALLUCINATION, AUDITORY
     Dosage: UNK UNK, 2X/DAY
     Route: 048
     Dates: start: 2017, end: 2017
  3. GEODON [Suspect]
     Active Substance: ZIPRASIDONE HYDROCHLORIDE\ZIPRASIDONE MESYLATE
     Indication: DEPRESSION
  4. ABILIFY [Suspect]
     Active Substance: ARIPIPRAZOLE
     Indication: HALLUCINATION, AUDITORY
     Dosage: UNK
     Dates: start: 201801
  5. REXULTI [Suspect]
     Active Substance: BREXPIPRAZOLE
     Indication: DEPRESSION
  6. ABILIFY [Suspect]
     Active Substance: ARIPIPRAZOLE
     Indication: DEPRESSION
  7. GEODON [Suspect]
     Active Substance: ZIPRASIDONE HYDROCHLORIDE\ZIPRASIDONE MESYLATE
     Indication: HALLUCINATION, AUDITORY
     Dosage: UNK
     Route: 065
  8. WELLBUTRIN [Concomitant]
     Active Substance: BUPROPION HYDROCHLORIDE
     Dosage: UNK

REACTIONS (10)
  - Memory impairment [Unknown]
  - Nausea [Unknown]
  - Depression [Unknown]
  - Malaise [Unknown]
  - Inability to afford medication [Unknown]
  - Suicide attempt [Unknown]
  - Hallucination, auditory [Unknown]
  - Skin pressure mark [Unknown]
  - Cholelithiasis [Unknown]
  - Drug ineffective [Unknown]

NARRATIVE: CASE EVENT DATE: 2017
